FAERS Safety Report 9894172 (Version 5)
Quarter: 2014Q1

REPORT INFORMATION
  Report Type: Spontaneous
  Country: US (occurrence: US)
  Receive Date: 20140213
  Receipt Date: 20140326
  Transmission Date: 20141002
  Serious: Yes (Other)
  Sender: FDA-Public Use
  Company Number: US-PFIZER INC-2014041244

PATIENT
  Age: 70 Year
  Sex: Female
  Weight: 83.9 kg

DRUGS (4)
  1. ALPRAZOLAM [Suspect]
     Indication: SLEEP DISORDER
     Dosage: 0.5 MG, AS NEEDED (UP TO 4 TABLETS)
     Route: 048
     Dates: start: 2003
  2. ALPRAZOLAM [Suspect]
     Indication: ANXIETY
  3. ALPRAZOLAM [Suspect]
     Indication: ABDOMINAL DISCOMFORT
  4. ATENOLOL [Concomitant]
     Indication: HYPERTENSION
     Dosage: 25 MG IN THE DAY AND 50 MG AT NIGHT 2X/DAY

REACTIONS (7)
  - Breast disorder [Unknown]
  - Abnormal dreams [Recovered/Resolved]
  - Visual acuity reduced [Unknown]
  - Vision blurred [Unknown]
  - Diarrhoea [Unknown]
  - Drug ineffective [Recovered/Resolved]
  - Drug ineffective for unapproved indication [Recovered/Resolved]
